FAERS Safety Report 15485137 (Version 1)
Quarter: 2018Q4

REPORT INFORMATION
  Report Type: Spontaneous
  Country: US (occurrence: US)
  Receive Date: 20181010
  Receipt Date: 20181010
  Transmission Date: 20190205
  Serious: No
  Sender: FDA-Public Use
  Company Number: US-ROCHE-2130433

PATIENT
  Sex: Male

DRUGS (4)
  1. CENTRUM SILVER ULTRA MEN^S [Concomitant]
  2. ATENOLOL. [Concomitant]
     Active Substance: ATENOLOL
  3. ESBRIET [Suspect]
     Active Substance: PIRFENIDONE
     Indication: IDIOPATHIC PULMONARY FIBROSIS
     Dosage: TAKE 1 TABLET BY MOUTH 3 TIMES A DAY.
     Route: 048
  4. ASPIRIN. [Concomitant]
     Active Substance: ASPIRIN

REACTIONS (1)
  - Epistaxis [Unknown]
